FAERS Safety Report 12755991 (Version 1)
Quarter: 2016Q3

REPORT INFORMATION
  Report Type: Spontaneous
  Country: US (occurrence: US)
  Receive Date: 20160916
  Receipt Date: 20160916
  Transmission Date: 20161109
  Serious: No
  Sender: FDA-Public Use
  Company Number: US-BAUSCH-BL-2016-014220

PATIENT
  Age: 63 Year
  Sex: Female
  Weight: 55.39 kg

DRUGS (3)
  1. ATRALIN [Suspect]
     Active Substance: TRETINOIN
     Indication: SKIN WRINKLING
     Dosage: ONCE EVERY NIGHT HALF HOUR AFTER WASHING HER FACE
     Route: 061
     Dates: start: 2005
  2. NEUTROGENA SPF 50 [Concomitant]
     Indication: THERAPEUTIC SKIN CARE TOPICAL
     Route: 061
  3. ATRALIN [Suspect]
     Active Substance: TRETINOIN
     Route: 061
     Dates: end: 201604

REACTIONS (4)
  - Skin burning sensation [Unknown]
  - Dry skin [Unknown]
  - Erythema [Unknown]
  - Off label use [Unknown]

NARRATIVE: CASE EVENT DATE: 201602
